FAERS Safety Report 13905134 (Version 1)
Quarter: 2017Q3

REPORT INFORMATION
  Report Type: Report from Study
  Country: DE (occurrence: DE)
  Receive Date: 20170825
  Receipt Date: 20170825
  Transmission Date: 20171127
  Serious: Yes (Hospitalization)
  Sender: FDA-Public Use
  Company Number: DE-BRISTOL-MYERS SQUIBB COMPANY-BMS-2016-001954

PATIENT
  Age: 66 Year
  Sex: Female
  Weight: 56 kg

DRUGS (12)
  1. PREDNISOLON                        /00016201/ [Concomitant]
     Active Substance: PREDNISOLONE
     Indication: ADVERSE EVENT
     Dosage: 60 MG, UNK
     Route: 048
     Dates: start: 20151009
  2. THOMAPYRIN                         /00005201/ [Concomitant]
     Indication: ADVERSE EVENT
     Dosage: UNK
     Route: 048
     Dates: start: 20150816, end: 20150817
  3. BALDRIAN-DISPERT [Concomitant]
     Indication: PRODUCT USED FOR UNKNOWN INDICATION
     Dosage: UNK, PRN
     Route: 048
  4. ZOPICLON [Concomitant]
     Active Substance: ZOPICLONE
     Indication: PRODUCT USED FOR UNKNOWN INDICATION
     Dosage: 7.5 MG, UNK
     Route: 048
  5. NIVOLUMAB [Suspect]
     Active Substance: NIVOLUMAB
     Indication: NEUROENDOCRINE CARCINOMA OF THE SKIN
     Dosage: 480 MG, UNK
     Route: 065
  6. ATORVASTIN [Concomitant]
     Active Substance: ATORVASTATIN
     Indication: PRODUCT USED FOR UNKNOWN INDICATION
     Dosage: 20 MG, UNK
     Route: 048
  7. BUSCOPAN [Concomitant]
     Active Substance: BUTYLSCOPOLAMINE BROMIDE
     Indication: ADVERSE EVENT
     Dosage: UNK
     Route: 048
     Dates: start: 20151102
  8. CEFIXIM [Concomitant]
     Active Substance: CEFIXIME
     Indication: ADVERSE EVENT
     Dosage: 400 MG, UNK
     Route: 048
     Dates: start: 20151012, end: 20151018
  9. L-THYROXIN [Concomitant]
     Active Substance: LEVOTHYROXINE SODIUM
     Indication: PRODUCT USED FOR UNKNOWN INDICATION
     Dosage: 75 ?G, UNK
     Route: 048
  10. SOLEDUM [Concomitant]
     Active Substance: EUCALYPTOL
     Indication: ADVERSE EVENT
     Dosage: 300 MG, UNK
     Route: 048
     Dates: start: 20151012, end: 20151014
  11. IPILIMUMAB [Suspect]
     Active Substance: IPILIMUMAB
     Indication: NEUROENDOCRINE CARCINOMA OF THE SKIN
     Dosage: 168 MG, UNK
     Route: 065
     Dates: start: 20150827, end: 20151030
  12. AMPHO-MORONAL [Concomitant]
     Active Substance: AMPHOTERICIN B
     Indication: ADVERSE EVENT
     Dosage: 40 MG, UNK
     Route: 048
     Dates: start: 20151019

REACTIONS (1)
  - Anaemia [Recovered/Resolved]

NARRATIVE: CASE EVENT DATE: 20160111
